FAERS Safety Report 8447920-9 (Version None)
Quarter: 2012Q2

REPORT INFORMATION
  Report Type: 
  Country: None (occurrence: None)
  Receive Date: 20120619
  Receipt Date: 20120611
  Transmission Date: 20120825
  Serious: Yes (Hospitalization, Other)
  Sender: FDA-Public Use
  Company Number: US-JNJFOC-20120605641

PATIENT
  Age: 83 Year
  Sex: Male
  Weight: 73.03 kg

DRUGS (1)
  1. XARELTO [Suspect]
     Indication: ATRIAL FIBRILLATION
     Route: 048
     Dates: start: 20120404, end: 20120405

REACTIONS (3)
  - MELAENA [None]
  - HAEMORRHAGE [None]
  - BLOOD URINE PRESENT [None]
